FAERS Safety Report 5250653-3 (Version None)
Quarter: 2007Q1

REPORT INFORMATION
  Report Type: 
  Country: None (occurrence: None)
  Receive Date: 20070228
  Receipt Date: 20060623
  Transmission Date: 20070707
  Serious: No
  Sender: FDA-Public Use
  Company Number: US-GLAXOSMITHKLINE-A0608651A

PATIENT
  Age: 52 Year
  Sex: Female

DRUGS (5)
  1. LAMICTAL [Suspect]
     Indication: BIPOLAR DISORDER
     Dosage: 200MG PER DAY
     Route: 048
     Dates: start: 20060425
  2. LEXAPRO [Concomitant]
  3. SEROQUEL [Concomitant]
     Dosage: 200MG AT NIGHT
  4. DESYREL [Concomitant]
     Dosage: 100MG AT NIGHT
  5. NAPROSYN [Concomitant]

REACTIONS (2)
  - APHASIA [None]
  - COGNITIVE DISORDER [None]
